FAERS Safety Report 8239576-5 (Version None)
Quarter: 2012Q1

REPORT INFORMATION
  Report Type: 
  Country: None (occurrence: None)
  Receive Date: 20120328
  Receipt Date: 20120323
  Transmission Date: 20120608
  Serious: Yes (Hospitalization, Other)
  Sender: FDA-Public Use
  Company Number: US-JNJFOC-20120202712

PATIENT
  Sex: Male
  Weight: 111.5 kg

DRUGS (5)
  1. HUMIRA [Suspect]
     Indication: PSORIASIS
     Dosage: APPROXIMATE A TOTAL OF 3 INJECTIONS WERE RECEIVED
     Route: 058
     Dates: start: 20090101, end: 20100101
  2. RAPTIVA [Suspect]
     Indication: PRODUCT USED FOR UNKNOWN INDICATION
     Dates: start: 20030101, end: 20090101
  3. MYCOPHENOLATE MOFETIL (CELLCEPT) [Suspect]
     Indication: PSORIASIS
     Route: 048
     Dates: start: 20100301, end: 20100701
  4. ENBREL [Suspect]
     Indication: PRODUCT USED FOR UNKNOWN INDICATION
     Dates: start: 20090101
  5. STELARA [Suspect]
     Indication: PSORIASIS
     Dosage: APPROXIMATE A TOTAL OF 3 INJECTIONS WERE RECEIVED
     Route: 058
     Dates: start: 20100519, end: 20101101

REACTIONS (1)
  - NON-HODGKIN'S LYMPHOMA [None]
